FAERS Safety Report 6179807-9 (Version None)
Quarter: 2009Q2

REPORT INFORMATION
  Report Type: 
  Country: None (occurrence: None)
  Receive Date: 20090505
  Receipt Date: 20090501
  Transmission Date: 20091009
  Serious: Yes (Hospitalization)
  Sender: FDA-Public Use
  Company Number: GB-WYE-G03625309

PATIENT
  Sex: Female
  Weight: 27 kg

DRUGS (1)
  1. TAZOCIN [Suspect]
     Dosage: 4.5 G (FREQUENCY UNSPECIFIED)
     Route: 058
     Dates: start: 20090424, end: 20090424

REACTIONS (3)
  - HYPERTENSION [None]
  - PARAESTHESIA [None]
  - VOMITING [None]
